FAERS Safety Report 6479524-1 (Version None)
Quarter: 2009Q4

REPORT INFORMATION
  Report Type: 
  Country: None (occurrence: None)
  Receive Date: 20091207
  Receipt Date: 20091207
  Transmission Date: 20100525
  Serious: No
  Sender: FDA-Public Use
  Company Number: None

PATIENT
  Sex: Female
  Weight: 93.8946 kg

DRUGS (1)
  1. JANUVIA [Suspect]
     Indication: DIABETES MELLITUS
     Dosage: 1 TABLET DAILY PO
     Route: 048
     Dates: start: 20090424, end: 20090617

REACTIONS (12)
  - BACK PAIN [None]
  - BURNING SENSATION [None]
  - CHEST PAIN [None]
  - CONDITION AGGRAVATED [None]
  - DEMENTIA ALZHEIMER'S TYPE [None]
  - HEADACHE [None]
  - HERPES ZOSTER [None]
  - MACULAR DEGENERATION [None]
  - PAIN IN EXTREMITY [None]
  - SINUS DISORDER [None]
  - SINUS HEADACHE [None]
  - VISION BLURRED [None]
